FAERS Safety Report 7957969-8 (Version None)
Quarter: 2011Q4

REPORT INFORMATION
  Report Type: 
  Country: None (occurrence: None)
  Receive Date: 20111205
  Receipt Date: 20111125
  Transmission Date: 20120403
  Serious: Yes (Other)
  Sender: FDA-Public Use
  Company Number: BR-ASTRAZENECA-2011SE47561

PATIENT
  Age: 65 Year
  Sex: Female
  Weight: 47 kg

DRUGS (7)
  1. DIAMICRON [Concomitant]
     Indication: DIABETES MELLITUS
     Dosage: TID
     Route: 048
     Dates: start: 20080101
  2. JANUMET [Concomitant]
     Indication: DIABETES MELLITUS
     Dosage: OD
     Route: 048
     Dates: start: 20101001
  3. NEXIUM [Suspect]
     Route: 048
  4. CRESTOR [Suspect]
     Indication: BLOOD CHOLESTEROL INCREASED
     Route: 048
     Dates: start: 20100101
  5. NEXIUM [Suspect]
     Indication: GASTROOESOPHAGEAL REFLUX DISEASE
     Route: 048
     Dates: start: 20110701
  6. METFORMIN HYDROCHLORIDE [Concomitant]
     Indication: DIABETES MELLITUS
     Dosage: OD
     Route: 048
     Dates: start: 20080101
  7. UNKNOWN [Suspect]
     Indication: OSTEOPENIA
     Route: 065
     Dates: start: 20110701, end: 20110701

REACTIONS (8)
  - OSTEOPENIA [None]
  - BURSITIS [None]
  - GASTRIC POLYPS [None]
  - WRONG TECHNIQUE IN DRUG USAGE PROCESS [None]
  - DIARRHOEA [None]
  - WEIGHT DECREASED [None]
  - DECREASED APPETITE [None]
  - DIABETES MELLITUS INADEQUATE CONTROL [None]
